FAERS Safety Report 21462454 (Version 1)
Quarter: 2022Q4

REPORT INFORMATION
  Report Type: Spontaneous
  Country: US (occurrence: None)
  Receive Date: 20221014
  Receipt Date: 20221014
  Transmission Date: 20230113
  Serious: Yes (Death, Life-Threatening, Hospitalization)
  Sender: FDA-Public Use
  Company Number: None

PATIENT
  Age: 71 Year
  Sex: Male

DRUGS (2)
  1. VENETOCLAX [Suspect]
     Active Substance: VENETOCLAX
     Indication: Acute myeloid leukaemia
     Dosage: FREQUENCY : DAILY;?
     Route: 048
     Dates: start: 20220721, end: 20220721
  2. AZACITIDINE [Suspect]
     Active Substance: AZACITIDINE
     Dosage: OTHER QUANTITY : 67.5 MG;?FREQUENCY : DAILY;?
     Route: 058
     Dates: start: 20220721, end: 20220721

REACTIONS (3)
  - Thrombocytopenia [None]
  - Leukopenia [None]
  - Anaemia [None]

NARRATIVE: CASE EVENT DATE: 20220820
